FAERS Safety Report 11349782 (Version 3)
Quarter: 2015Q4

REPORT INFORMATION
  Report Type: Spontaneous
  Country: CA (occurrence: CA)
  Receive Date: 20150807
  Receipt Date: 20151204
  Transmission Date: 20160304
  Serious: Yes (Life-Threatening, Hospitalization, Disabling)
  Sender: FDA-Public Use
  Company Number: CA-JNJFOC-20150723639

PATIENT
  Age: 62 Year
  Sex: Female
  Weight: 73.48 kg

DRUGS (8)
  1. ATORVASTATIN [Concomitant]
     Active Substance: ATORVASTATIN
     Route: 065
  2. DITROPAN [Concomitant]
     Active Substance: OXYBUTYNIN CHLORIDE
     Route: 065
  3. LANTUS [Suspect]
     Active Substance: INSULIN GLARGINE
     Indication: TYPE 2 DIABETES MELLITUS
     Route: 058
     Dates: start: 20150620
  4. VICTOZA [Suspect]
     Active Substance: LIRAGLUTIDE
     Indication: TYPE 2 DIABETES MELLITUS
     Route: 058
     Dates: start: 20131203
  5. INVOKANA [Suspect]
     Active Substance: CANAGLIFLOZIN
     Indication: TYPE 2 DIABETES MELLITUS
     Route: 065
     Dates: start: 20141127, end: 2014
  6. LOSEC [Concomitant]
     Active Substance: OMEPRAZOLE
     Route: 065
  7. MESLON [Concomitant]
     Route: 065
  8. INVOKANA [Suspect]
     Active Substance: CANAGLIFLOZIN
     Indication: TYPE 2 DIABETES MELLITUS
     Route: 065
     Dates: start: 20141212, end: 201502

REACTIONS (15)
  - Subdural haemorrhage [Recovered/Resolved]
  - Delirium [Unknown]
  - Diabetic ketoacidosis [Recovered/Resolved]
  - Cognitive disorder [Unknown]
  - Posterior reversible encephalopathy syndrome [Recovered/Resolved]
  - Hypothermia [Unknown]
  - Pain [Unknown]
  - Cerebrovascular accident [Unknown]
  - Osmolar gap increased [Recovered/Resolved]
  - Pyelonephritis [Recovered/Resolved]
  - Renal abscess [Unknown]
  - Hypernatraemia [Recovered/Resolved]
  - Acute kidney injury [Recovered/Resolved]
  - Subarachnoid haemorrhage [Recovered/Resolved]
  - Loss of consciousness [Recovered/Resolved]

NARRATIVE: CASE EVENT DATE: 201502
